FAERS Safety Report 8900151 (Version 2)
Quarter: 2012Q4

REPORT INFORMATION
  Report Type: 
  Country: US (occurrence: US)
  Receive Date: 20121109
  Receipt Date: 20121211
  Transmission Date: 20130627
  Serious: Yes (Other)
  Sender: FDA-Public Use
  Company Number: PHEH2012US022029

PATIENT
  Sex: Female

DRUGS (6)
  1. DIOVAN HCT [Suspect]
  2. VALSARTAN + HCT [Suspect]
  3. ARMOUR THYROID [Concomitant]
  4. NEXUM [Concomitant]
  5. LIVALO [Concomitant]
     Dosage: UNK
  6. SLUOXYTEINE [Concomitant]

REACTIONS (9)
  - Myocardial infarction [Unknown]
  - Arterial occlusive disease [Unknown]
  - Cardiac valve disease [Unknown]
  - Alopecia [Unknown]
  - Hair texture abnormal [Unknown]
  - Micturition disorder [Unknown]
  - Abdominal pain upper [Unknown]
  - Insomnia [Unknown]
  - Hypertension [Unknown]
